FAERS Safety Report 16377206 (Version 1)
Quarter: 2019Q3

REPORT INFORMATION
  Report Type: Spontaneous
  Country: US (occurrence: US)
  Receive Date: 20190530
  Receipt Date: 20190530
  Transmission Date: 20191004
  Serious: Yes (Life-Threatening, Hospitalization, Disabling, Other)
  Sender: FDA-Public Use
  Company Number: None

PATIENT
  Age: 64 Year
  Sex: Male
  Weight: 81 kg

DRUGS (23)
  1. MYCOPHENOLATE [Concomitant]
     Active Substance: MYCOPHENOLIC ACID
  2. AMILORIDE [Concomitant]
     Active Substance: AMILORIDE
  3. ONDANSETRON [Concomitant]
     Active Substance: ONDANSETRON
  4. FLUOURACIL [Concomitant]
     Active Substance: FLUOROURACIL
  5. TYLENOL [Concomitant]
     Active Substance: ACETAMINOPHEN
  6. MELATONIN [Concomitant]
     Active Substance: MELATONIN
  7. PANTOPRAZOLE [Concomitant]
     Active Substance: PANTOPRAZOLE
  8. PROPRANOLOL [Concomitant]
     Active Substance: PROPRANOLOL HYDROCHLORIDE
  9. ALBUTEROL. [Concomitant]
     Active Substance: ALBUTEROL
  10. SUMATRIPTAN. [Concomitant]
     Active Substance: SUMATRIPTAN
  11. ATROVASTATIN [Concomitant]
     Active Substance: ATORVASTATIN CALCIUM
  12. AIMOVIG [Concomitant]
     Active Substance: ERENUMAB-AOOE
  13. RIBOFLAVIN [Concomitant]
     Active Substance: RIBOFLAVIN
  14. FUROSAMIDE [Concomitant]
     Active Substance: FUROSEMIDE
  15. TRIAMCINOLONE LOTION [Concomitant]
  16. VITAMIN D3 [Concomitant]
     Active Substance: CHOLECALCIFEROL
  17. VITAMIN B12 [Concomitant]
     Active Substance: CYANOCOBALAMIN
  18. RITUXAN [Suspect]
     Active Substance: RITUXIMAB
     Indication: RHEUMATOID ARTHRITIS
     Dosage: ?          OTHER FREQUENCY:4/YEAR;?
     Route: 042
  19. LORATIDINE [Concomitant]
     Active Substance: LORATADINE
  20. SULFAMETHAXAZOLE/TRIMETHOPRIM [Concomitant]
  21. FLUTICASONE. [Concomitant]
     Active Substance: FLUTICASONE
  22. DESONIDE CREAM [Concomitant]
     Active Substance: DESONIDE
  23. BABY ASPIRIN [Concomitant]
     Active Substance: ASPIRIN

REACTIONS (7)
  - Liver disorder [None]
  - Lung neoplasm [None]
  - Skin cancer [None]
  - Meningitis viral [None]
  - Hepatic cirrhosis [None]
  - Immune system disorder [None]
  - Lung neoplasm malignant [None]

NARRATIVE: CASE EVENT DATE: 20170801
